FAERS Safety Report 17142112 (Version 2)
Quarter: 2019Q4

REPORT INFORMATION
  Report Type: Spontaneous
  Country: HR (occurrence: HR)
  Receive Date: 20191211
  Receipt Date: 20191226
  Transmission Date: 20200122
  Serious: Yes (Other)
  Sender: FDA-Public Use
  Company Number: HR-PFIZER INC-2019530107

PATIENT
  Age: 51 Year
  Sex: Male

DRUGS (3)
  1. SILDENAFIL CITRATE. [Suspect]
     Active Substance: SILDENAFIL CITRATE
     Dosage: 5 MG, UNK
  2. UROREC [Suspect]
     Active Substance: SILODOSIN
     Indication: URINE FLOW DECREASED
     Dosage: 8 MG, UNK
  3. UROREC [Suspect]
     Active Substance: SILODOSIN
     Indication: NOCTURIA

REACTIONS (2)
  - Erectile dysfunction [Recovered/Resolved]
  - Condition aggravated [Recovered/Resolved]
